FAERS Safety Report 21363112 (Version 1)
Quarter: 2022Q3

REPORT INFORMATION
  Report Type: Spontaneous
  Country: US (occurrence: None)
  Receive Date: 20220921
  Receipt Date: 20220921
  Transmission Date: 20221026
  Serious: No
  Sender: FDA-Public Use
  Company Number: None

PATIENT
  Age: 75 Year
  Sex: Male
  Weight: 63.5 kg

DRUGS (14)
  1. LUPRON DEPOT [Suspect]
     Active Substance: LEUPROLIDE ACETATE
     Indication: Prostate cancer
     Dosage: FREQUENCY : MONTHLY;?
     Route: 030
     Dates: start: 202102, end: 202209
  2. ANUCORT-HC [Concomitant]
  3. ATORVASTATIN [Concomitant]
  4. BACLOFEN [Concomitant]
  5. CASODEX [Concomitant]
     Active Substance: BICALUTAMIDE
  6. DEXILANT [Concomitant]
  7. OMEPRAZOLE [Concomitant]
  8. GABAPENTIN [Concomitant]
  9. GLIPIZIDE [Concomitant]
  10. LANTUS SOLOSTAR [Concomitant]
  11. LOSARTAN [Concomitant]
  12. TAMSULOSIN [Concomitant]
     Active Substance: TAMSULOSIN
  13. VASCEPA [Concomitant]
  14. VITAMIN B COMPLEX [Concomitant]
     Active Substance: CYANOCOBALAMIN\DEXPANTHENOL\NIACINAMIDE\PYRIDOXINE HYDROCHLORIDE\RIBOFLAVIN 5^-PHOSPHATE SODIUM\THIA

REACTIONS (1)
  - Death [None]
